FAERS Safety Report 5230393-7 (Version None)
Quarter: 2007Q1

REPORT INFORMATION
  Report Type: 
  Country: None (occurrence: None)
  Receive Date: 20070201
  Receipt Date: 20070118
  Transmission Date: 20070707
  Serious: Yes (Hospitalization)
  Sender: FDA-Public Use
  Company Number: S06-ITA-04131-01

PATIENT
  Sex: Female
  Weight: 68 kg

DRUGS (3)
  1. CIPRALEX (ESCITALOPRAM) [Suspect]
     Indication: AFFECTIVE DISORDER
     Dosage: 5 MG QD PO
     Route: 048
  2. CIPRALEX (ESCITALOPRAM) [Suspect]
     Indication: AFFECTIVE DISORDER
     Dosage: 10 MG QD PO
     Route: 048
     Dates: end: 20060902
  3. LORMETAZEPAM [Concomitant]

REACTIONS (6)
  - CAESAREAN SECTION [None]
  - DISEASE RECURRENCE [None]
  - DRUG EFFECT DECREASED [None]
  - DRUG EXPOSURE DURING PREGNANCY [None]
  - INVESTIGATION ABNORMAL [None]
  - PREGNANCY [None]
